FAERS Safety Report 9424077 (Version 1)
Quarter: 2013Q3

REPORT INFORMATION
  Report Type: Spontaneous
  Country: BE (occurrence: BE)
  Receive Date: 20130729
  Receipt Date: 20130729
  Transmission Date: 20140515
  Serious: Yes (Hospitalization)
  Sender: FDA-Public Use
  Company Number: BE-JNJFOC-20130713722

PATIENT
  Sex: Female

DRUGS (2)
  1. CIRRUS [Suspect]
     Route: 048
  2. CIRRUS [Suspect]
     Indication: PRODUCT USED FOR UNKNOWN INDICATION
     Dosage: SINCE 3 YEARS, DURING 2 PERIODS EACH YEAR
     Route: 048
     Dates: start: 2011

REACTIONS (2)
  - Dysarthria [Unknown]
  - Ataxia [Unknown]
